FAERS Safety Report 18626423 (Version 1)
Quarter: 2020Q4

REPORT INFORMATION
  Report Type: Report from Study
  Country: None (occurrence: US)
  Receive Date: 20201216
  Receipt Date: 20201216
  Transmission Date: 20210114
  Serious: Yes (Hospitalization, Other)
  Sender: FDA-Public Use
  Company Number: US-ABBVIE-20K-163-3691996-00

PATIENT
  Age: 47 Year
  Sex: Female

DRUGS (2)
  1. HUMIRA [Suspect]
     Active Substance: ADALIMUMAB
     Route: 058
     Dates: start: 20201203
  2. HUMIRA [Suspect]
     Active Substance: ADALIMUMAB
     Indication: RHEUMATOID ARTHRITIS
     Route: 058
     Dates: start: 20201007, end: 2020

REACTIONS (9)
  - Arthralgia [Not Recovered/Not Resolved]
  - Arthralgia [Unknown]
  - Urinary retention postoperative [Unknown]
  - Diverticulitis [Recovered/Resolved]
  - Joint swelling [Unknown]
  - Joint stiffness [Unknown]
  - Anxiety [Unknown]
  - Loss of personal independence in daily activities [Unknown]
  - Depression [Unknown]

NARRATIVE: CASE EVENT DATE: 2020
